FAERS Safety Report 5153394-6 (Version None)
Quarter: 2006Q4

REPORT INFORMATION
  Report Type: 
  Country: None (occurrence: None)
  Receive Date: 20061113
  Receipt Date: 20061103
  Transmission Date: 20070319
  Serious: Yes (Other)
  Sender: FDA-Public Use
  Company Number: HQWYE406103NOV06

PATIENT
  Age: 69 Year
  Sex: Male

DRUGS (1)
  1. CORDARONE [Suspect]
     Indication: VENTRICULAR EXTRASYSTOLES
     Dosage: 150 MG ONCE
     Route: 042
     Dates: start: 20050718, end: 20050718

REACTIONS (6)
  - ANAPHYLACTIC SHOCK [None]
  - BACK PAIN [None]
  - LOSS OF CONSCIOUSNESS [None]
  - MUSCULOSKELETAL PAIN [None]
  - URINARY INCONTINENCE [None]
  - WRONG TECHNIQUE IN DRUG USAGE PROCESS [None]
